FAERS Safety Report 4619896-3 (Version None)
Quarter: 2005Q1

REPORT INFORMATION
  Report Type: 
  Country: None (occurrence: None)
  Receive Date: 20050321
  Receipt Date: 20050321
  Transmission Date: 20050727
  Serious: Yes (Other)
  Sender: FDA-Public Use
  Company Number: None

PATIENT
  Age: 21 Year
  Sex: Female
  Weight: 52.6173 kg

DRUGS (4)
  1. WARFARIN SODIUM [Suspect]
     Indication: FACTOR V LEIDEN MUTATION
     Dosage: 5 MG PO DAILY
     Route: 048
     Dates: start: 20040513, end: 20040525
  2. WARFARIN SODIUM [Suspect]
     Indication: PROTEIN S DEFICIENCY
     Dosage: 5 MG PO DAILY
     Route: 048
     Dates: start: 20040513, end: 20040525
  3. DEPO PROVEA [Concomitant]
  4. ERYTHROMYCIN [Concomitant]

REACTIONS (3)
  - ACNE [None]
  - PHARMACEUTICAL PRODUCT COMPLAINT [None]
  - RASH [None]
